FAERS Safety Report 6086526-6 (Version None)
Quarter: 2009Q1

REPORT INFORMATION
  Report Type: 
  Country: None (occurrence: None)
  Receive Date: 20090218
  Receipt Date: 20090203
  Transmission Date: 20090719
  Serious: Yes (Death)
  Sender: FDA-Public Use
  Company Number: 8042494

PATIENT
  Age: 78 Year
  Sex: Female
  Weight: 145 kg

DRUGS (8)
  1. KEPPRA [Suspect]
     Indication: CONVULSION
     Dosage: 1000 MG 1/D PO
     Route: 048
     Dates: start: 20080101, end: 20090130
  2. DARVOCET-N 100 [Concomitant]
  3. FEMARA [Concomitant]
  4. TORSEMIDE [Concomitant]
  5. LABETALOL HCL [Concomitant]
  6. DEXAMETHAZONE-PIX [Concomitant]
  7. EFFEXOR [Concomitant]
  8. POTASSIUM /00031402/ [Concomitant]

REACTIONS (2)
  - PNEUMONIA [None]
  - PULMONARY OEDEMA [None]
